FAERS Safety Report 13918118 (Version 1)
Quarter: 2017Q3

REPORT INFORMATION
  Report Type: Spontaneous
  Country: GR (occurrence: GR)
  Receive Date: 20170829
  Receipt Date: 20170829
  Transmission Date: 20171127
  Serious: Yes (Hospitalization)
  Sender: FDA-Public Use
  Company Number: PHHY2016GR156266

PATIENT
  Age: 52 Year
  Sex: Male
  Weight: 85 kg

DRUGS (7)
  1. PITAVA [Suspect]
     Active Substance: PITAVASTATIN
     Indication: HYPERLIPIDAEMIA
     Dosage: 2 MG, QD
     Route: 048
     Dates: start: 201605, end: 201608
  2. BLOCATENS [Concomitant]
     Indication: CORONARY ARTERY DISEASE
     Dosage: 10 MG, QD
     Route: 048
     Dates: start: 201502
  3. VALSARTAN. [Concomitant]
     Active Substance: VALSARTAN
     Indication: CORONARY ARTERY DISEASE
     Route: 048
     Dates: start: 201502
  4. LESCOL [Suspect]
     Active Substance: FLUVASTATIN SODIUM
     Indication: HYPERLIPIDAEMIA
     Dosage: 40 MG, QD
     Route: 048
     Dates: start: 201604, end: 201604
  5. LIPIGAN [Suspect]
     Active Substance: ATORVASTATIN CALCIUM
     Indication: HYPERLIPIDAEMIA
     Dosage: 40 MG, QD
     Route: 048
     Dates: start: 201411, end: 201602
  6. CRESTOR [Suspect]
     Active Substance: ROSUVASTATIN CALCIUM
     Indication: HYPERLIPIDAEMIA
     Dosage: 10 UNK, QD
     Route: 048
     Dates: start: 201602, end: 201603
  7. CLOVELEN [Concomitant]
     Active Substance: CLOPIDOGREL BISULFATE
     Indication: CORONARY ARTERY DISEASE
     Route: 048
     Dates: start: 201502

REACTIONS (3)
  - Myalgia [Recovered/Resolved]
  - Drug intolerance [Recovered/Resolved]
  - Myopathy [Recovered/Resolved]
